FAERS Safety Report 5614226-2 (Version None)
Quarter: 2008Q1

REPORT INFORMATION
  Report Type: 
  Country: None (occurrence: None)
  Receive Date: 20080205
  Receipt Date: 20080205
  Transmission Date: 20080703
  Serious: Yes (Disabling, Other)
  Sender: FDA-Public Use
  Company Number: A0707329A

PATIENT
  Age: 37 Year
  Sex: Male
  Weight: 73.2 kg

DRUGS (1)
  1. ALLI [Suspect]
     Route: 048

REACTIONS (3)
  - NEPHROLITHIASIS [None]
  - OVERDOSE [None]
  - RENAL PAIN [None]
